FAERS Safety Report 6295949-1 (Version None)
Quarter: 2009Q3

REPORT INFORMATION
  Report Type: 
  Country: None (occurrence: None)
  Receive Date: 20090804
  Receipt Date: 20090720
  Transmission Date: 20100115
  Serious: Yes (Other)
  Sender: FDA-Public Use
  Company Number: GB-CELGENEUS-167-20484-09071630

PATIENT
  Age: 22 Year
  Sex: Female
  Weight: 141 kg

DRUGS (12)
  1. INNOHEP [Suspect]
     Indication: THROMBOSIS PROPHYLAXIS
     Route: 058
     Dates: start: 20070619, end: 20071001
  2. INNOHEP [Suspect]
     Route: 058
     Dates: start: 20071002, end: 20071224
  3. INNOHEP [Suspect]
     Route: 058
     Dates: start: 20071225
  4. LABETALOL HCL [Concomitant]
     Indication: HYPERTENSION
     Route: 065
     Dates: start: 20071130
  5. RANITIDINE [Concomitant]
     Route: 065
     Dates: start: 20071225, end: 20071225
  6. DIAMORPHINE [Concomitant]
     Indication: PAIN
     Route: 065
     Dates: start: 20071225, end: 20071225
  7. MEPERIDINE HCL [Concomitant]
     Indication: PAIN
     Route: 065
     Dates: start: 20071225, end: 20071225
  8. STEMETIL [Concomitant]
     Indication: PROPHYLAXIS
     Route: 065
     Dates: start: 20071225, end: 20071225
  9. SYNTOCINON [Concomitant]
     Indication: LABOUR STIMULATION
     Route: 051
     Dates: start: 20071225, end: 20071225
  10. PARACETAMOL [Concomitant]
     Indication: PAIN
     Route: 065
     Dates: start: 20071225, end: 20071227
  11. LIGNOCAINE [Concomitant]
     Indication: FORCEPS DELIVERY
     Route: 065
     Dates: start: 20071225, end: 20071225
  12. LIGNOCAINE [Concomitant]
     Indication: ANAESTHESIA

REACTIONS (2)
  - DRUG EXPOSURE DURING PREGNANCY [None]
  - POSTPARTUM HAEMORRHAGE [None]
